FAERS Safety Report 23617563 (Version 3)
Quarter: 2024Q2

REPORT INFORMATION
  Report Type: Spontaneous
  Country: US (occurrence: US)
  Receive Date: 20240311
  Receipt Date: 20240523
  Transmission Date: 20240716
  Serious: No
  Sender: FDA-Public Use
  Company Number: US-BEH-2024169108

PATIENT
  Age: 13 Year
  Sex: Male
  Weight: 48 kg

DRUGS (4)
  1. HIZENTRA [Suspect]
     Active Substance: HUMAN IMMUNOGLOBULIN G
     Indication: Immunodeficiency
     Dosage: 7 GRAM, QW
     Route: 058
     Dates: start: 202310
  2. HIZENTRA [Suspect]
     Active Substance: HUMAN IMMUNOGLOBULIN G
     Dosage: UNK
     Route: 065
  3. EPINEPHRINE [Concomitant]
     Active Substance: EPINEPHRINE
  4. LIDOCAINE\PRILOCAINE [Concomitant]
     Active Substance: LIDOCAINE\PRILOCAINE

REACTIONS (7)
  - Pyrexia [Recovered/Resolved]
  - Migraine [Recovered/Resolved]
  - Migraine [Unknown]
  - Nausea [Unknown]
  - Pyrexia [Unknown]
  - Migraine [Unknown]
  - Vomiting [Unknown]
